FAERS Safety Report 9023561 (Version 1)
Quarter: 2013Q1

REPORT INFORMATION
  Report Type: Spontaneous
  Country: BR (occurrence: BR)
  Receive Date: 20130121
  Receipt Date: 20130121
  Transmission Date: 20140127
  Serious: Yes (Hospitalization, Other)
  Sender: FDA-Public Use
  Company Number: PHHY2013BR005343

PATIENT
  Sex: Female
  Weight: 70 kg

DRUGS (4)
  1. DIOVAN AMLO [Suspect]
     Dosage: 160/ UNKNOWN MG, UNK
     Route: 048
  2. DIOVAN TRIPLE [Suspect]
     Dosage: 160/5/12.5MG, UKN
     Route: 048
  3. LANTUS [Concomitant]
     Indication: DIABETES MELLITUS
     Dosage: 1 DF, DAILY
     Route: 030
  4. HUMALOG [Concomitant]
     Indication: DIABETES MELLITUS
     Dosage: 1 DF, DAILY
     Route: 030

REACTIONS (3)
  - Localised infection [Recovered/Resolved]
  - Dyspnoea [Recovered/Resolved]
  - Hypertension [Recovered/Resolved]
